FAERS Safety Report 8334987-1 (Version None)
Quarter: 2012Q2

REPORT INFORMATION
  Report Type: 
  Country: None (occurrence: None)
  Receive Date: 20120503
  Receipt Date: 20100319
  Transmission Date: 20120825
  Serious: No
  Sender: FDA-Public Use
  Company Number: US-TEVA-2010001612

PATIENT
  Sex: Male
  Weight: 68.1 kg

DRUGS (5)
  1. NUVIGIL [Suspect]
     Dosage: 75 MILLIGRAM;
     Route: 048
     Dates: start: 20100312, end: 20100301
  2. NUVIGIL [Suspect]
     Dosage: 75 MILLIGRAM;
     Route: 048
     Dates: start: 20100303, end: 20100311
  3. NUVIGIL [Suspect]
     Dosage: 37.5 MILLIGRAM;
     Route: 048
     Dates: start: 20100301, end: 20100317
  4. CRESTOR [Concomitant]
     Indication: BLOOD CHOLESTEROL INCREASED
     Dosage: 10 MILLIGRAM;
     Dates: start: 20070101
  5. NUVIGIL [Suspect]
     Indication: SOMNOLENCE
     Dosage: 150 MILLIGRAM;
     Route: 048
     Dates: start: 20100101, end: 20100101

REACTIONS (5)
  - AGITATION [None]
  - ANXIETY [None]
  - DEPRESSION [None]
  - DRUG INTERACTION [None]
  - DRUG EFFECT INCREASED [None]
